FAERS Safety Report 9982257 (Version 1)
Quarter: 2014Q1

REPORT INFORMATION
  Report Type: Report from Study
  Country: US (occurrence: US)
  Receive Date: 20140307
  Receipt Date: 20140307
  Transmission Date: 20141002
  Serious: No
  Sender: FDA-Public Use
  Company Number: US-ABBVIE-13P-163-1176131-00

PATIENT
  Age: 45 Year
  Sex: Female
  Weight: 95.79 kg

DRUGS (16)
  1. HUMIRA [Suspect]
     Indication: PRODUCT USED FOR UNKNOWN INDICATION
     Route: 058
  2. MULTIVITAMIN [Concomitant]
     Indication: PRODUCT USED FOR UNKNOWN INDICATION
  3. IRON [Concomitant]
     Indication: PRODUCT USED FOR UNKNOWN INDICATION
  4. METAMUCIL FIBRE THERAPY [Concomitant]
     Indication: PRODUCT USED FOR UNKNOWN INDICATION
  5. ADDERALL [Concomitant]
     Indication: PRODUCT USED FOR UNKNOWN INDICATION
  6. ASACOL [Concomitant]
     Indication: PRODUCT USED FOR UNKNOWN INDICATION
     Dosage: DR
  7. LOMOTIL [Concomitant]
     Indication: PRODUCT USED FOR UNKNOWN INDICATION
  8. FLEXERIL [Concomitant]
     Indication: PRODUCT USED FOR UNKNOWN INDICATION
  9. PROMETHAZINE [Concomitant]
     Indication: PRODUCT USED FOR UNKNOWN INDICATION
  10. CHOLESTYRAMINE [Concomitant]
     Indication: PRODUCT USED FOR UNKNOWN INDICATION
  11. PRILOSEC [Concomitant]
     Indication: PRODUCT USED FOR UNKNOWN INDICATION
  12. KEFLEX [Concomitant]
     Indication: PRODUCT USED FOR UNKNOWN INDICATION
  13. PHRENILIN [Concomitant]
     Indication: PRODUCT USED FOR UNKNOWN INDICATION
     Dosage: 50-335MG
  14. IMITREX [Concomitant]
     Indication: PRODUCT USED FOR UNKNOWN INDICATION
  15. LEVOTHYROXIN [Concomitant]
     Indication: PRODUCT USED FOR UNKNOWN INDICATION
  16. LASIX [Concomitant]
     Indication: PRODUCT USED FOR UNKNOWN INDICATION

REACTIONS (6)
  - Local swelling [Unknown]
  - Joint swelling [Unknown]
  - Local swelling [Unknown]
  - Pain in extremity [Unknown]
  - Arthralgia [Unknown]
  - Pain in extremity [Unknown]
